FAERS Safety Report 6971977-5 (Version None)
Quarter: 2010Q3

REPORT INFORMATION
  Report Type: 
  Country: None (occurrence: None)
  Receive Date: 20100908
  Receipt Date: 20100908
  Transmission Date: 20110219
  Serious: Yes (Other)
  Sender: FDA-Public Use
  Company Number: None

PATIENT
  Age: 75 Year
  Sex: Female
  Weight: 59.4212 kg

DRUGS (1)
  1. BONIVA [Suspect]
     Indication: PROPHYLAXIS
     Dosage: 1 PER MO.
     Dates: start: 20081201, end: 20100101

REACTIONS (2)
  - ARTHRALGIA [None]
  - BONE PAIN [None]
